FAERS Safety Report 7932812 (Version 3)
Quarter: 2013Q4

REPORT INFORMATION
  Report Type: Spontaneous
  Country: US (occurrence: US)
  Receive Date: 20110506
  Receipt Date: 20131206
  Transmission Date: 20140711
  Serious: Yes (Hospitalization)
  Sender: FDA-Public Use
  Company Number: US-BAYER-2011-037860

PATIENT
  Age: 39 Year
  Sex: Female
  Weight: 74 kg

DRUGS (8)
  1. YAZ [Suspect]
     Indication: ORAL CONTRACEPTION
     Dosage: UNK
     Dates: start: 2008, end: 2009
  2. YAZ [Suspect]
     Indication: ORAL CONTRACEPTION
     Dosage: UNK
     Dates: start: 2008, end: 2009
  3. YAZ [Suspect]
     Indication: ORAL CONTRACEPTION
     Dosage: UNK
     Dates: start: 2008, end: 2009
  4. YASMIN [Suspect]
     Indication: ORAL CONTRACEPTION
     Dosage: UNK
     Dates: start: 2008, end: 2009
  5. ANTIMIGRAINE PREPARATIONS [Concomitant]
     Indication: MIGRAINE
  6. NEXIUM [Concomitant]
     Dosage: 40 MG, QD
     Dates: start: 20090819
  7. RANITIDIN [Concomitant]
     Dosage: 150 MG, QD
     Route: 048
     Dates: start: 20090626
  8. PRILOSEC [Concomitant]
     Dosage: 20 MG, QD
     Route: 048
     Dates: start: 20090626

REACTIONS (9)
  - Cholecystitis chronic [None]
  - Cholecystectomy [None]
  - Injury [None]
  - Organ failure [None]
  - Pain [None]
  - General physical health deterioration [None]
  - Anxiety [None]
  - Anhedonia [None]
  - Emotional distress [None]
